FAERS Safety Report 5092406-5 (Version None)
Quarter: 2006Q3

REPORT INFORMATION
  Report Type: 
  Country: None (occurrence: None)
  Receive Date: 20060825
  Receipt Date: 20060818
  Transmission Date: 20061208
  Serious: Yes (Other)
  Sender: FDA-Public Use
  Company Number: 2006099943

PATIENT
  Age: 8 Year
  Sex: Female
  Weight: 29.4838 kg

DRUGS (1)
  1. PURELL WITH ALOE (ETHYL ALCOHOL) [Suspect]
     Dosage: 1/2 BOTTLE ONCE, ORAL
     Route: 048
     Dates: start: 20060817, end: 20060817

REACTIONS (6)
  - BLOOD ALCOHOL INCREASED [None]
  - GAIT DISTURBANCE [None]
  - HEPATIC ENZYME INCREASED [None]
  - INCORRECT DOSE ADMINISTERED [None]
  - INCORRECT ROUTE OF DRUG ADMINISTRATION [None]
  - MOANING [None]
